FAERS Safety Report 4960306-4 (Version None)
Quarter: 2006Q1

REPORT INFORMATION
  Report Type: 
  Country: None (occurrence: None)
  Receive Date: 20060328
  Receipt Date: 20060310
  Transmission Date: 20060701
  Serious: Yes (Death, Hospitalization)
  Sender: FDA-Public Use
  Company Number: 223210

PATIENT
  Age: 41 Year
  Sex: Female

DRUGS (5)
  1. AVASTIN [Suspect]
     Indication: COLORECTAL CANCER METASTATIC
     Dosage: 5 MG/KG, Q2W
     Dates: start: 20051108, end: 20051206
  2. CETUXIMAB (CETUXIMAB) [Suspect]
     Indication: COLORECTAL CANCER METASTATIC
     Dosage: 250 MG/M2, 1/WEEK, INTRAVENOUS
     Route: 042
     Dates: start: 20051108, end: 20051206
  3. MORPHINE [Concomitant]
  4. OSYROL 100-LASIX (FUROSEMIDE, SPIRONOLACTONE) [Concomitant]
  5. PANNTOZOL (PANTOPRAZOLE) [Concomitant]

REACTIONS (1)
  - GASTRITIS HAEMORRHAGIC [None]
